FAERS Safety Report 8201918-4 (Version None)
Quarter: 2012Q1

REPORT INFORMATION
  Report Type: 
  Country: None (occurrence: None)
  Receive Date: 20120312
  Receipt Date: 20120301
  Transmission Date: 20120608
  Serious: Yes (Hospitalization)
  Sender: FDA-Public Use
  Company Number: GB-BRISTOL-MYERS SQUIBB COMPANY-16426587

PATIENT
  Age: 60 Year
  Sex: Female

DRUGS (12)
  1. ARNICA EXTRACT [Concomitant]
  2. ZINC SULFATE [Concomitant]
  3. TPN [Concomitant]
  4. BREWERS YEAST [Concomitant]
  5. VITAMIN B-12 [Concomitant]
  6. IRON [Concomitant]
  7. ALOE VERA [Concomitant]
  8. LOVAZA [Concomitant]
  9. FOLIC ACID [Concomitant]
  10. SPRYCEL [Suspect]
     Dosage: SPRYCEL TABS
     Dates: start: 20120210, end: 20120211
  11. GARLIC [Concomitant]
  12. ASCORBIC ACID [Concomitant]

REACTIONS (1)
  - ANAPHYLACTIC REACTION [None]
